FAERS Safety Report 7362857 (Version 2)
Quarter: 2014Q1

REPORT INFORMATION
  Report Type: Spontaneous
  Country: US (occurrence: US)
  Receive Date: 20100422
  Receipt Date: 20140311
  Transmission Date: 20141002
  Serious: Yes (Other)
  Sender: FDA-Public Use
  Company Number: US-ASTRAZENECA-2009SE26690

PATIENT
  Age: 92 Year
  Sex: Female
  Weight: 45.4 kg

DRUGS (18)
  1. TENORMIN [Suspect]
     Route: 048
     Dates: start: 1994
  2. TOPROL-XL [Suspect]
     Indication: ATRIAL FIBRILLATION
     Route: 048
     Dates: start: 200907
  3. TOPROL-XL [Suspect]
     Indication: ATRIAL FIBRILLATION
     Route: 048
  4. TOPROL-XL [Suspect]
     Indication: ATRIAL FIBRILLATION
     Route: 048
     Dates: start: 2009
  5. PRILOSEC [Suspect]
     Indication: HELICOBACTER INFECTION
     Dosage: DAILY
     Route: 048
     Dates: start: 1992
  6. PRILOSEC [Suspect]
     Indication: GASTRIC DISORDER
     Dosage: DAILY
     Route: 048
     Dates: start: 1992
  7. PRILOSEC [Suspect]
     Indication: HELICOBACTER INFECTION
     Route: 048
     Dates: start: 20120216, end: 20120412
  8. PRILOSEC [Suspect]
     Indication: GASTRIC DISORDER
     Route: 048
     Dates: start: 20120216, end: 20120412
  9. CRESTOR [Suspect]
     Indication: LOW DENSITY LIPOPROTEIN INCREASED
     Route: 048
  10. ZANTAC [Concomitant]
  11. ECOTRIN [Concomitant]
  12. CITRACAL [Concomitant]
  13. FOLIC ACID [Concomitant]
  14. VITAMINS [Concomitant]
  15. COSAMINE [Concomitant]
     Indication: ARTHRITIS
  16. NORVASC [Concomitant]
     Indication: HYPERTENSION
  17. PRAVACHOL [Concomitant]
  18. LANOXIN [Concomitant]

REACTIONS (12)
  - Spinal fracture [Unknown]
  - Body height decreased [Unknown]
  - Blood pressure fluctuation [Unknown]
  - Blood pressure inadequately controlled [Unknown]
  - Palpitations [Unknown]
  - Weight decreased [Unknown]
  - Atrial fibrillation [Unknown]
  - Dizziness [Unknown]
  - Rash generalised [Recovered/Resolved]
  - Off label use [Unknown]
  - Off label use [Unknown]
  - Off label use [Unknown]
